FAERS Safety Report 5956624-3 (Version None)
Quarter: 2008Q4

REPORT INFORMATION
  Report Type: 
  Country: None (occurrence: None)
  Receive Date: 20081118
  Receipt Date: 20081113
  Transmission Date: 20090506
  Serious: Yes (Disabling)
  Sender: FDA-Public Use
  Company Number: US-MERCK-0811USA02142

PATIENT
  Age: 81 Year
  Sex: Male

DRUGS (2)
  1. PRINIVIL [Suspect]
     Indication: HYPERTENSION
     Route: 048
     Dates: start: 20060101, end: 20060101
  2. LEVOXYL [Concomitant]
     Route: 065

REACTIONS (3)
  - DYSGEUSIA [None]
  - SEXUAL DYSFUNCTION [None]
  - WEIGHT DECREASED [None]
